FAERS Safety Report 10146861 (Version 1)
Quarter: 2014Q2

REPORT INFORMATION
  Report Type: Spontaneous
  Country: US (occurrence: None)
  Receive Date: 20140430
  Receipt Date: 20140430
  Transmission Date: 20141212
  Serious: Yes (Hospitalization)
  Sender: FDA-Public Use
  Company Number: None

PATIENT
  Age: 47 Year
  Sex: Male

DRUGS (3)
  1. FAMCICLOVIR [Suspect]
     Indication: PROPHYLAXIS
     Dosage: EVERY 12 HOURS
     Route: 048
     Dates: start: 20130711, end: 20130715
  2. ROSUVASTATIN [Concomitant]
  3. FLUVOXAMINE [Concomitant]

REACTIONS (4)
  - Throat tightness [None]
  - Rash [None]
  - Rash [None]
  - Dyspnoea [None]
